FAERS Safety Report 9900089 (Version 2)
Quarter: 2014Q1

REPORT INFORMATION
  Report Type: Spontaneous
  Country: US (occurrence: US)
  Receive Date: 20140214
  Receipt Date: 20140214
  Transmission Date: 20141002
  Serious: Yes (Death, Disabling)
  Sender: FDA-Public Use
  Company Number: US-GE HEALTHCARE MEDICAL DIAGNOSTICS-OSCN-PR-0811S-0636

PATIENT
  Age: 50 Year
  Sex: Male

DRUGS (47)
  1. OMNISCAN [Suspect]
     Indication: RENAL CANCER
     Dates: start: 20030502, end: 20030502
  2. OMNISCAN [Suspect]
     Indication: DIZZINESS
     Route: 042
     Dates: start: 20061215, end: 20061215
  3. GADOLINIUM (UNSPECIFIED) [Suspect]
     Indication: RENAL CANCER
     Route: 042
     Dates: start: 19950804, end: 19950804
  4. GADOLINIUM (UNSPECIFIED) [Suspect]
     Indication: NEPHRECTOMY
     Dates: start: 19960410, end: 19960410
  5. GADOLINIUM (UNSPECIFIED) [Suspect]
     Indication: FLANK PAIN
     Route: 042
     Dates: start: 19970321, end: 19970321
  6. GADOLINIUM (UNSPECIFIED) [Suspect]
     Indication: ANURIA
     Dates: start: 19970326, end: 19970326
  7. GADOLINIUM (UNSPECIFIED) [Suspect]
     Indication: RENAL FAILURE
     Dates: start: 19970709, end: 19970709
  8. GADOLINIUM (UNSPECIFIED) [Suspect]
     Indication: RENAL CELL CARCINOMA
     Dates: start: 20010829, end: 20010829
  9. OPTIMARK [Suspect]
     Indication: RENAL MASS
     Dates: start: 20040707, end: 20040707
  10. OPTIMARK [Suspect]
     Indication: METASTATIC NEOPLASM
     Dates: start: 20040714, end: 20040714
  11. OPTIMARK [Suspect]
     Indication: HEPATIC LESION
     Dates: start: 20050712, end: 20050712
  12. OPTIMARK [Suspect]
     Indication: MUSCULOSKELETAL PAIN
     Dates: start: 20050714, end: 20050714
  13. OPTIMARK [Suspect]
     Dates: start: 20051129, end: 20051129
  14. OPTIMARK [Suspect]
     Dates: start: 20051201, end: 20051201
  15. OPTIMARK [Suspect]
     Dates: start: 20060404, end: 20060404
  16. OPTIMARK [Suspect]
     Dates: start: 20060406, end: 20060406
  17. OPTIMARK [Suspect]
     Dates: start: 20071009, end: 20071009
  18. OPTIMARK [Suspect]
     Dates: start: 20071025, end: 20071025
  19. OPTIMARK [Suspect]
     Dates: start: 20071204, end: 20071204
  20. MAGNEVIST [Suspect]
     Indication: RENAL CYST
     Dates: start: 19930528, end: 19930528
  21. WARFARIN SODIUM [Concomitant]
  22. LOTENSIN [Concomitant]
  23. COLCHICINE [Concomitant]
  24. IRON SULFATE [Concomitant]
  25. LODINE [Concomitant]
  26. NORVASC [Concomitant]
  27. EPOGEN [Concomitant]
  28. ALLOPURINOL [Concomitant]
  29. NEPHROCAPS [Concomitant]
  30. CALCIUM [Concomitant]
  31. CARDURA [Concomitant]
  32. BICITRA [Concomitant]
  33. NEURONTIN [Concomitant]
  34. CELEBREX [Concomitant]
  35. RENAGEL [Concomitant]
  36. PAMELOR [Concomitant]
  37. MIDODRINE [Concomitant]
  38. TEMAZEPAM [Concomitant]
  39. FLUDROCORTISONE [Concomitant]
  40. ALPRAZOLAM [Concomitant]
  41. OXYCONTIN [Concomitant]
  42. HYDROXYZINE [Concomitant]
  43. SENSIPAR [Concomitant]
  44. PROCRIT [Concomitant]
  45. ZYRTEC [Concomitant]
  46. TRICOR [Concomitant]
  47. AVAPRO [Concomitant]

REACTIONS (1)
  - Nephrogenic systemic fibrosis [Fatal]
